FAERS Safety Report 26105633 (Version 3)
Quarter: 2025Q4

REPORT INFORMATION
  Report Type: Spontaneous
  Country: EU (occurrence: EU)
  Receive Date: 20251201
  Receipt Date: 20251219
  Transmission Date: 20260117
  Serious: Yes (Other)
  Sender: AUROBINDO
  Company Number: EU-002147023-NVSC2025DE135412

PATIENT
  Sex: Female

DRUGS (4)
  1. LETROZOLE [Suspect]
     Active Substance: LETROZOLE
     Indication: Breast cancer
     Dosage: 2.5 MILLIGRAM, ONCE A DAY (2.5 MG, QD)
     Route: 061
     Dates: start: 20250729
  2. KISQALI [Suspect]
     Active Substance: RIBOCICLIB SUCCINATE
     Indication: Breast cancer
     Dosage: 400 MILLIGRAM (400 MG (21D/7D)
     Route: 061
     Dates: start: 20250729, end: 20250908
  3. KISQALI [Suspect]
     Active Substance: RIBOCICLIB SUCCINATE
     Dosage: 0 MG (TREATMENT INTERRUPTED)
     Route: 061
     Dates: start: 20250909, end: 20250922
  4. KISQALI [Suspect]
     Active Substance: RIBOCICLIB SUCCINATE
     Dosage: 400 MILLIGRAM (400 MG (21D/7D)
     Route: 061

REACTIONS (12)
  - Uterine prolapse [Recovered/Resolved]
  - Blood creatinine increased [Not Recovered/Not Resolved]
  - Micturition urgency [Not Recovered/Not Resolved]
  - Nausea [Recovered/Resolved]
  - Abdominal pain upper [Recovered/Resolved]
  - Rash [Recovered/Resolved]
  - Herpes zoster [Recovered/Resolved]
  - Aspartate aminotransferase increased [Recovered/Resolved]
  - Pulpitis dental [Not Recovered/Not Resolved]
  - Alanine aminotransferase increased [Recovered/Resolved]
  - Dyspepsia [Not Recovered/Not Resolved]
  - Dry mouth [Not Recovered/Not Resolved]

NARRATIVE: CASE EVENT DATE: 20250811
